FAERS Safety Report 10218674 (Version 2)
Quarter: 2014Q2

REPORT INFORMATION
  Report Type: Report from Study
  Country: PR (occurrence: PR)
  Receive Date: 20140605
  Receipt Date: 20140605
  Transmission Date: 20141212
  Serious: Yes (Hospitalization)
  Sender: FDA-Public Use
  Company Number: PR-BAYER-2014-057759

PATIENT
  Age: 59 Year
  Sex: Male

DRUGS (1)
  1. RIOCIGUAT (GUANYLATE CYCLASE STIMULATOR) [Suspect]
     Indication: PULMONARY ARTERIAL HYPERTENSION
     Dosage: 1 MG, TID
     Route: 048
     Dates: start: 20140305, end: 20140522

REACTIONS (5)
  - Hypersensitivity [None]
  - Rash pruritic [None]
  - Rash pruritic [None]
  - Blood potassium decreased [None]
  - Rash [None]
